FAERS Safety Report 9546688 (Version 1)
Quarter: 2013Q3

REPORT INFORMATION
  Report Type: Spontaneous
  Country: US (occurrence: US)
  Receive Date: 20130924
  Receipt Date: 20130924
  Transmission Date: 20140515
  Serious: No
  Sender: FDA-Public Use
  Company Number: US-BIOGENIDEC-2013BI090188

PATIENT
  Age: 56 Year
  Sex: Female

DRUGS (33)
  1. AVONEX [Suspect]
     Indication: PRODUCT USED FOR UNKNOWN INDICATION
     Route: 030
     Dates: end: 20130708
  2. AMPYRA [Concomitant]
     Indication: GAIT DISTURBANCE
     Route: 048
     Dates: start: 201304, end: 2013
  3. AMPYRA [Concomitant]
     Indication: MULTIPLE SCLEROSIS
     Route: 048
     Dates: start: 201304, end: 2013
  4. AMPYRA [Concomitant]
     Indication: GAIT DISTURBANCE
     Route: 048
     Dates: start: 2013, end: 2013
  5. AMPYRA [Concomitant]
     Indication: MULTIPLE SCLEROSIS
     Route: 048
     Dates: start: 2013, end: 2013
  6. AMPYRA [Concomitant]
     Indication: GAIT DISTURBANCE
     Route: 048
     Dates: start: 2013, end: 20130621
  7. AMPYRA [Concomitant]
     Indication: MULTIPLE SCLEROSIS
     Route: 048
     Dates: start: 2013, end: 20130621
  8. AMPYRA [Concomitant]
     Indication: GAIT DISTURBANCE
     Route: 048
     Dates: start: 20130622, end: 2013
  9. AMPYRA [Concomitant]
     Indication: MULTIPLE SCLEROSIS
     Route: 048
     Dates: start: 20130622, end: 2013
  10. AMPYRA [Concomitant]
     Indication: GAIT DISTURBANCE
     Route: 048
     Dates: start: 2013, end: 20130722
  11. AMPYRA [Concomitant]
     Indication: MULTIPLE SCLEROSIS
     Route: 048
     Dates: start: 2013, end: 20130722
  12. NEURONTIN [Concomitant]
     Dates: start: 2007
  13. TRAMADOL [Concomitant]
     Dates: start: 1978
  14. INDERAL [Concomitant]
     Dates: start: 1988
  15. ASPIRIN [Concomitant]
     Dates: start: 1988
  16. HYDROCHLOROTHIAZIDE [Concomitant]
     Dates: start: 1998
  17. FLOMAX [Concomitant]
     Dates: start: 2008
  18. OXYBUTYNIN CHLORIDE [Concomitant]
     Dates: start: 2008
  19. POTASSIUM [Concomitant]
     Dates: start: 1998
  20. ACTIGALL [Concomitant]
  21. BACLOFEN [Concomitant]
     Dates: start: 2008
  22. FLEXERIL [Concomitant]
     Dates: start: 2008
  23. CLONAZEPAM [Concomitant]
  24. CYMBALTA [Concomitant]
     Dates: start: 2009
  25. LACTULOSE [Concomitant]
     Dates: start: 2012
  26. PROVIGIL [Concomitant]
     Dates: start: 201211
  27. OMEPRAZOLE [Concomitant]
  28. ZANTAC [Concomitant]
  29. FISH OIL [Concomitant]
  30. BEANO [Concomitant]
  31. BIOTIN [Concomitant]
  32. VITAMIN D [Concomitant]
     Dates: start: 2008
  33. COLACE [Concomitant]

REACTIONS (9)
  - Blood pressure increased [Unknown]
  - Petechiae [Recovered/Resolved]
  - Fall [Recovered/Resolved]
  - Gait disturbance [Not Recovered/Not Resolved]
  - Balance disorder [Recovered/Resolved]
  - Adverse event [Unknown]
  - Pain [Not Recovered/Not Resolved]
  - Hypersensitivity [Recovered/Resolved]
  - Feeling hot [Not Recovered/Not Resolved]
